FAERS Safety Report 6836964-6 (Version None)
Quarter: 2010Q3

REPORT INFORMATION
  Report Type: 
  Country: None (occurrence: None)
  Receive Date: 20100713
  Receipt Date: 20070425
  Transmission Date: 20110219
  Serious: No
  Sender: FDA-Public Use
  Company Number: US-PFIZER INC-2007035328

PATIENT
  Sex: Male
  Weight: 75 kg

DRUGS (3)
  1. CHANTIX [Suspect]
     Indication: SMOKING CESSATION THERAPY
     Route: 048
     Dates: start: 20070101
  2. MICARDIS [Suspect]
     Dosage: ^40/12.5^
     Dates: start: 20070101
  3. NORVASC [Concomitant]

REACTIONS (2)
  - BLOOD CREATININE INCREASED [None]
  - RENAL FUNCTION TEST ABNORMAL [None]
